FAERS Safety Report 9863428 (Version 2)
Quarter: 2014Q1

REPORT INFORMATION
  Report Type: Spontaneous
  Country: US (occurrence: US)
  Receive Date: 20140203
  Receipt Date: 20140206
  Transmission Date: 20141002
  Serious: No
  Sender: FDA-Public Use
  Company Number: US-009507513-1402USA000699

PATIENT
  Age: 87 Year
  Sex: Female
  Weight: 56.24 kg

DRUGS (5)
  1. OXYTROL FOR WOMEN [Suspect]
     Indication: HYPERTONIC BLADDER
     Dosage: 1 DF, Q4D
     Route: 062
     Dates: start: 20131229, end: 20140115
  2. TRAMADOL HYDROCHLORIDE [Concomitant]
     Indication: ARTHRITIS
     Dosage: UNK, UNKNOWN
  3. VOLTAREN EMULGEL [Concomitant]
     Indication: ARTHRITIS
     Dosage: UNK, UNKNOWN
  4. TRIAMTERENE [Concomitant]
     Indication: HYPERTENSION
     Dosage: UNK, UNKNOWN
  5. VERAPAMIL [Concomitant]
     Indication: HYPERTENSION
     Dosage: UNK, UNKNOWN

REACTIONS (1)
  - Drug ineffective [Unknown]
